FAERS Safety Report 9769366 (Version 1)
Quarter: 2013Q4

REPORT INFORMATION
  Report Type: Report from Study
  Country: ES (occurrence: ES)
  Receive Date: 20131218
  Receipt Date: 20131218
  Transmission Date: 20140711
  Serious: Yes (Other)
  Sender: FDA-Public Use
  Company Number: ES-ASTELLAS-2013US013096

PATIENT
  Sex: 0

DRUGS (2)
  1. ERLOTINIB TABLET [Suspect]
     Indication: PANCREATIC CARCINOMA METASTATIC
     Dosage: UNK
     Route: 065
  2. GEMCITABINE /01215702/ [Suspect]
     Indication: PANCREATIC CARCINOMA METASTATIC
     Dosage: UNK
     Route: 065

REACTIONS (1)
  - Neutropenia [Unknown]
